FAERS Safety Report 18210234 (Version 1)
Quarter: 2020Q3

REPORT INFORMATION
  Report Type: Spontaneous
  Country: US (occurrence: US)
  Receive Date: 20200829
  Receipt Date: 20200829
  Transmission Date: 20201103
  Serious: No
  Sender: FDA-Public Use
  Company Number: US-UNITED THERAPEUTICS-UNT-2020-012574

PATIENT
  Age: 49 Year
  Sex: Female

DRUGS (4)
  1. TYVASO [Suspect]
     Active Substance: TREPROSTINIL
     Dosage: 36 ?G, QID
     Dates: start: 202008
  2. PREDNISONE. [Suspect]
     Active Substance: PREDNISONE
     Indication: PRODUCT USED FOR UNKNOWN INDICATION
     Dosage: UNK
     Route: 065
  3. TYVASO [Suspect]
     Active Substance: TREPROSTINIL
     Indication: PULMONARY ARTERIAL HYPERTENSION
     Dosage: UNK
     Dates: start: 20200812
  4. TYVASO [Suspect]
     Active Substance: TREPROSTINIL
     Dosage: 24?36 ?G, QID
     Dates: start: 202008

REACTIONS (9)
  - Feeling jittery [Recovering/Resolving]
  - Peripheral swelling [Recovering/Resolving]
  - Dizziness exertional [Unknown]
  - Cough [Unknown]
  - Dyspnoea [Unknown]
  - Muscle tightness [Recovering/Resolving]
  - Device computer issue [Unknown]
  - Weight increased [Recovering/Resolving]
  - Dizziness [Recovering/Resolving]

NARRATIVE: CASE EVENT DATE: 202008
